FAERS Safety Report 25429199 (Version 2)
Quarter: 2025Q2

REPORT INFORMATION
  Report Type: Report from Study
  Country: HU (occurrence: HU)
  Receive Date: 20250612
  Receipt Date: 20250619
  Transmission Date: 20250717
  Serious: Yes (Life-Threatening, Hospitalization)
  Sender: MERCK SHARP & DOHME LLC
  Company Number: HU-ASTRAZENECA-202411GLO003746HU

PATIENT
  Age: 60 Year
  Sex: Female
  Weight: 97 kg

DRUGS (19)
  1. PEMBROLIZUMAB [Suspect]
     Active Substance: PEMBROLIZUMAB
     Indication: Triple negative breast cancer
     Dosage: 200 MG, ONCE EVERY 3 WK
     Route: 050
     Dates: start: 20240911, end: 20241024
  2. FILGRASTIM [Concomitant]
     Active Substance: FILGRASTIM
     Indication: Neutropenia
     Dosage: 0.5 ML, QD (DAILY)
     Route: 050
     Dates: start: 20241017
  3. CONTROLOC [Concomitant]
     Active Substance: PANTOPRAZOLE SODIUM
     Indication: Premedication
     Route: 050
     Dates: start: 20240911
  4. CARBOPLATIN [Suspect]
     Active Substance: CARBOPLATIN
     Indication: Triple negative breast cancer
     Route: 050
     Dates: start: 20240911, end: 20241024
  5. RAMIPRIL [Concomitant]
     Active Substance: RAMIPRIL
     Indication: Hypertension
     Dosage: 5 MG, QD (DAILY)
     Route: 050
     Dates: start: 20180901
  6. MEDROL [Concomitant]
     Active Substance: METHYLPREDNISOLONE
     Indication: Premedication
     Dosage: 32 MG, QD (DAILY)
     Route: 050
     Dates: start: 20240919, end: 20240919
  7. MEDROL [Concomitant]
     Active Substance: METHYLPREDNISOLONE
     Indication: Premedication
     Dosage: 32 MG, QD (DAILY)
     Route: 050
     Dates: start: 20241023, end: 20241025
  8. CHLOROPYRAMINE HYDROCHLORIDE [Concomitant]
     Active Substance: CHLOROPYRAMINE HYDROCHLORIDE
     Indication: Premedication
     Route: 050
     Dates: start: 20240911
  9. LOPERAMIDE HYDROCHLORIDE [Concomitant]
     Active Substance: LOPERAMIDE HYDROCHLORIDE
     Indication: Diarrhoea
     Dosage: UNK, QD (DAILY)
     Route: 050
     Dates: start: 20240915, end: 20240917
  10. ONDANSETRON HYDROCHLORIDE [Concomitant]
     Active Substance: ONDANSETRON HYDROCHLORIDE
     Indication: Premedication
     Route: 050
     Dates: start: 20240911
  11. PANTOPRAZOLE SODIUM [Concomitant]
     Active Substance: PANTOPRAZOLE SODIUM
     Indication: Premedication
     Dosage: 40 MG, QD (DAILY)
     Route: 050
     Dates: start: 20241023, end: 20241025
  12. PANTOPRAZOLE SODIUM [Concomitant]
     Active Substance: PANTOPRAZOLE SODIUM
     Indication: Premedication
     Dosage: 40 MG, QD (DAILY)
     Route: 050
     Dates: start: 20240919, end: 20240919
  13. ENOXAPARIN SODIUM [Concomitant]
     Active Substance: ENOXAPARIN SODIUM
     Indication: Thrombosis prophylaxis
     Dosage: 0.6 ML, QD (DAILY)
     Route: 050
     Dates: start: 20240911
  14. DIETARY SUPPLEMENT\HERBALS\MILK THISTLE [Concomitant]
     Active Substance: MILK THISTLE
     Indication: Liver disorder
     Dosage: 70 MG, TID (3 TIMES PER DAY)
     Route: 050
     Dates: start: 20240918
  15. ASPIRIN [Concomitant]
     Active Substance: ASPIRIN
     Indication: Deep vein thrombosis
     Dosage: 100 MG, QD (DAILY)
     Route: 050
     Dates: start: 2008
  16. METHYLPREDNISOLONE [Concomitant]
     Active Substance: METHYLPREDNISOLONE
     Indication: Premedication
     Route: 050
     Dates: start: 20240911
  17. PACLITAXEL [Suspect]
     Active Substance: PACLITAXEL
     Indication: Triple negative breast cancer
     Dosage: 80 MILLILITRE PER SQUARE METRE, Q3W
     Route: 050
     Dates: start: 20240911, end: 20241022
  18. MONURAL [Concomitant]
     Indication: Urinary tract infection
     Dosage: 3 G, QD (DAILY)
     Route: 050
     Dates: start: 20241030, end: 20241031
  19. CIPROFLOXACIN HYDROCHLORIDE [Concomitant]
     Active Substance: CIPROFLOXACIN HYDROCHLORIDE
     Indication: Antibiotic therapy
     Dosage: 200 MG, QD (DAILY)
     Route: 050
     Dates: start: 20241105

REACTIONS (1)
  - Acute kidney injury [Recovered/Resolved with Sequelae]

NARRATIVE: CASE EVENT DATE: 20241106
